FAERS Safety Report 7519517-6 (Version None)
Quarter: 2011Q2

REPORT INFORMATION
  Report Type: 
  Country: None (occurrence: None)
  Receive Date: 20110602
  Receipt Date: 20110526
  Transmission Date: 20111010
  Serious: Yes (Death)
  Sender: FDA-Public Use
  Company Number: FR-BRISTOL-MYERS SQUIBB COMPANY-15736762

PATIENT
  Age: 47 Year
  Sex: Male

DRUGS (3)
  1. ERBITUX [Suspect]
     Indication: HEAD AND NECK CANCER
     Dosage: 16FEB-06APR10(48 DY) 250 MG/M2:FOLLOWING INITIAL DOSE-06APR2010 400MG/M2:ONCE:16FEB-16FEB2010
     Route: 042
     Dates: start: 20100216
  2. CARBOPLATIN [Suspect]
     Indication: HEAD AND NECK CANCER
     Dosage: ON THE FIRST DAY OF A 21DAY CYCLE
     Route: 042
     Dates: start: 20100222, end: 20100409
  3. FLUOROURACIL [Suspect]
     Indication: HEAD AND NECK CANCER
     Dosage: ON THE FIRST DAY OF A 21DAY CYCLE
     Route: 042
     Dates: start: 20100222, end: 20100409

REACTIONS (1)
  - DEATH [None]
